FAERS Safety Report 5999688-3 (Version None)
Quarter: 2008Q4

REPORT INFORMATION
  Report Type: 
  Country: None (occurrence: None)
  Receive Date: 20081211
  Receipt Date: 20081211
  Transmission Date: 20090506
  Serious: Yes (Hospitalization)
  Sender: FDA-Public Use
  Company Number: None

PATIENT
  Age: 64 Year
  Sex: Male

DRUGS (15)
  1. ERLOTINIB [Suspect]
     Indication: BILE DUCT CANCER
     Dosage: 150 MG PO DAILY
  2. ERLOTINIB [Suspect]
     Indication: PANCREATIC CARCINOMA
     Dosage: 150 MG PO DAILY
  3. GEMCITABINE HCL [Suspect]
     Indication: BILE DUCT CANCER
  4. GEMCITABINE HCL [Suspect]
     Indication: PANCREATIC CARCINOMA
  5. SYNTHROID [Concomitant]
  6. LISINOPRIL [Concomitant]
  7. SENOKOT [Concomitant]
  8. KLONOPIN [Concomitant]
  9. MS CONTIN [Concomitant]
  10. LIPITOR [Concomitant]
  11. PLAVIX [Concomitant]
  12. ASPIRIN [Concomitant]
  13. TENORETIC 100 [Concomitant]
  14. FAMOTIDINE [Concomitant]
  15. MEGACE [Concomitant]

REACTIONS (4)
  - HYPOTENSION [None]
  - RENAL FAILURE ACUTE [None]
  - RHABDOMYOLYSIS [None]
  - SHOCK [None]
